FAERS Safety Report 8114745-3 (Version None)
Quarter: 2012Q1

REPORT INFORMATION
  Report Type: 
  Country: None (occurrence: None)
  Receive Date: 20120206
  Receipt Date: 20120130
  Transmission Date: 20120608
  Serious: Yes (Hospitalization)
  Sender: FDA-Public Use
  Company Number: US-CELGENEUS-163-21880-11113198

PATIENT
  Sex: Male
  Weight: 92.1 kg

DRUGS (4)
  1. PAIN MEDS [Concomitant]
     Indication: PAIN
     Route: 065
  2. XANAX [Concomitant]
     Route: 065
  3. REVLIMID [Suspect]
     Indication: MULTIPLE MYELOMA
     Dosage: 25 MILLIGRAM
     Route: 048
     Dates: start: 20110308
  4. REVLIMID [Suspect]
     Dosage: 25 MILLIGRAM
     Route: 048
     Dates: start: 20120105

REACTIONS (7)
  - ASTHENIA [None]
  - PNEUMONIA [None]
  - ROTATOR CUFF SYNDROME [None]
  - PANCYTOPENIA [None]
  - HYPERVENTILATION [None]
  - CONFUSIONAL STATE [None]
  - DISEASE PROGRESSION [None]
